FAERS Safety Report 7561060-2 (Version None)
Quarter: 2011Q2

REPORT INFORMATION
  Report Type: 
  Country: None (occurrence: None)
  Receive Date: 20110620
  Receipt Date: 20110620
  Transmission Date: 20111010
  Serious: Yes (Hospitalization, Other)
  Sender: FDA-Public Use
  Company Number: None

PATIENT
  Age: 33 Year
  Sex: Female
  Weight: 54.4316 kg

DRUGS (2)
  1. MINOCYCLINE HCL [Suspect]
     Indication: ACNE
     Dosage: SINGLE TABLET PO
     Route: 048
     Dates: start: 20110617, end: 20110617
  2. MINOCYCLINE HCL [Suspect]
     Indication: ACNE
     Dosage: SINGLE TABLET PO
     Route: 048
     Dates: start: 20110501, end: 20110501

REACTIONS (6)
  - URTICARIA [None]
  - RASH GENERALISED [None]
  - PRURITUS GENERALISED [None]
  - SKIN EXFOLIATION [None]
  - DRUG EFFECT DECREASED [None]
  - EYE SWELLING [None]
